FAERS Safety Report 5126019-3 (Version None)
Quarter: 2006Q4

REPORT INFORMATION
  Report Type: 
  Country: None (occurrence: None)
  Receive Date: 20061012
  Receipt Date: 20060724
  Transmission Date: 20070319
  Serious: Yes (Death, Hospitalization)
  Sender: FDA-Public Use
  Company Number: FR-SANOFI-SYNTHELABO-F01200601722

PATIENT
  Sex: Male

DRUGS (30)
  1. BICARBONATE [Concomitant]
     Dosage: UNK
     Route: 065
     Dates: start: 20050509, end: 20050714
  2. ZOFRAN [Concomitant]
     Dosage: UNK
     Route: 065
     Dates: start: 20050511, end: 20050704
  3. LASIX [Concomitant]
     Dosage: UNK
     Route: 065
     Dates: start: 20050502, end: 20050714
  4. ALDACTONE [Concomitant]
     Dosage: UNK
     Route: 065
     Dates: start: 20050502, end: 20050709
  5. SOLUPRED [Concomitant]
     Dosage: UNK
     Route: 065
     Dates: start: 20050503, end: 20050509
  6. SOLU-MEDROL [Concomitant]
     Dosage: UNK
     Route: 065
     Dates: start: 20050517, end: 20050711
  7. MOVICOL [Concomitant]
     Dosage: UNK
     Route: 065
     Dates: start: 20050508, end: 20050508
  8. ATARAX [Concomitant]
     Dosage: UNK
     Route: 065
     Dates: start: 20050520, end: 20050527
  9. NORMACOL [Concomitant]
     Dosage: UNK
     Route: 065
     Dates: start: 20050517, end: 20050517
  10. FRAGMIN [Concomitant]
     Dosage: UNK
     Route: 065
     Dates: start: 20050517, end: 20050526
  11. CONTRAMAL [Concomitant]
     Dosage: UNK
     Route: 065
     Dates: start: 20050518, end: 20050518
  12. POLARAMINE [Concomitant]
     Dosage: UNK
     Route: 065
     Dates: start: 20050710, end: 20050710
  13. AMIKLIN [Concomitant]
     Dosage: UNK
     Route: 065
     Dates: start: 20050708, end: 20050710
  14. SANDOSTATIN [Concomitant]
     Dosage: UNK
     Route: 065
     Dates: start: 20050710, end: 20050714
  15. ALBUMIN (HUMAN) [Concomitant]
     Dosage: UNK
     Route: 065
     Dates: start: 20050710, end: 20050714
  16. CLINOMEL [Concomitant]
     Dosage: UNK
     Route: 065
     Dates: start: 20050701, end: 20050713
  17. TRANSFUSION [Concomitant]
     Dosage: UNK
     Route: 065
     Dates: start: 20050705, end: 20050710
  18. OXYGEN [Concomitant]
     Dosage: UNK
     Route: 055
     Dates: start: 20050701, end: 20050714
  19. SPASFON [Concomitant]
     Dosage: UNK
     Route: 065
     Dates: start: 20050517, end: 20050703
  20. AUGMENTIN [Concomitant]
     Dosage: UNK
     Route: 065
     Dates: start: 20050702, end: 20050710
  21. ROCEPHIN [Concomitant]
     Dosage: UNK
     Route: 065
     Dates: start: 20050630, end: 20050708
  22. ACETAMINOPHEN [Concomitant]
     Dosage: UNK
     Route: 065
     Dates: start: 20050703, end: 20050712
  23. LORAZEPAM [Concomitant]
     Dosage: UNK
     Route: 065
     Dates: start: 20050607, end: 20050708
  24. THERALENE [Concomitant]
     Dosage: UNK
     Route: 065
     Dates: start: 20050607, end: 20050708
  25. OMEPRAZOLE [Concomitant]
     Dosage: UNK
     Route: 065
     Dates: start: 20050516, end: 20050711
  26. KABIVEN [Concomitant]
     Dosage: UNK
     Route: 065
     Dates: start: 20050527, end: 20050701
  27. ZOLPIDEM TARTRATE [Concomitant]
     Dosage: UNK
     Route: 065
     Dates: start: 20050411, end: 20050515
  28. FUNGIZONE [Concomitant]
     Dosage: UNK
     Route: 065
     Dates: start: 20050509, end: 20050714
  29. CAPECITABINE [Suspect]
     Route: 048
     Dates: start: 20050509
  30. OXALIPLATIN [Suspect]
     Indication: COLORECTAL CANCER METASTATIC
     Route: 042
     Dates: start: 20050509, end: 20050509

REACTIONS (6)
  - ABDOMINAL PAIN [None]
  - DISEASE PROGRESSION [None]
  - DYSPNOEA [None]
  - GENERAL PHYSICAL HEALTH DETERIORATION [None]
  - THROMBOCYTOPENIA [None]
  - VOMITING [None]
